FAERS Safety Report 14942812 (Version 3)
Quarter: 2018Q3

REPORT INFORMATION
  Report Type: Spontaneous
  Country: IT (occurrence: IT)
  Receive Date: 20180528
  Receipt Date: 20180710
  Transmission Date: 20181010
  Serious: Yes (Hospitalization)
  Sender: FDA-Public Use
  Company Number: IT-SUN PHARMACEUTICAL INDUSTRIES LTD-2018RR-173772

PATIENT
  Age: 62 Year
  Sex: Female

DRUGS (1)
  1. TEMOZOLOMIDE SUN [Suspect]
     Active Substance: TEMOZOLOMIDE
     Indication: BRAIN NEOPLASM
     Dosage: 120 MG, 1/WEEK
     Dates: start: 20180115, end: 20180216

REACTIONS (2)
  - Pancytopenia [Recovered/Resolved]
  - Haematoma [Recovered/Resolved]

NARRATIVE: CASE EVENT DATE: 20180216
